FAERS Safety Report 24109040 (Version 1)
Quarter: 2024Q3

REPORT INFORMATION
  Report Type: Spontaneous
  Country: US (occurrence: US)
  Receive Date: 20240718
  Receipt Date: 20240718
  Transmission Date: 20241017
  Serious: Yes (Other)
  Sender: ACCORD
  Company Number: US-MLMSERVICE-20240701-PI117496-00082-2

PATIENT
  Age: 64 Year
  Sex: Female

DRUGS (8)
  1. CARBOPLATIN [Suspect]
     Active Substance: CARBOPLATIN
     Indication: Neoplasm recurrence
  2. GEMCITABINE [Suspect]
     Active Substance: GEMCITABINE
     Indication: Diffuse large B-cell lymphoma stage IV
  3. DEXAMETHASONE [Suspect]
     Active Substance: DEXAMETHASONE
     Indication: Neoplasm recurrence
  4. RITUXIMAB [Suspect]
     Active Substance: RITUXIMAB
     Indication: Neoplasm recurrence
  5. RITUXIMAB [Suspect]
     Active Substance: RITUXIMAB
     Indication: Diffuse large B-cell lymphoma stage IV
  6. DEXAMETHASONE [Suspect]
     Active Substance: DEXAMETHASONE
     Indication: Diffuse large B-cell lymphoma stage IV
  7. GEMCITABINE [Suspect]
     Active Substance: GEMCITABINE
     Indication: Neoplasm recurrence
  8. CARBOPLATIN [Suspect]
     Active Substance: CARBOPLATIN
     Indication: Diffuse large B-cell lymphoma stage IV

REACTIONS (2)
  - Delirium [Unknown]
  - Off label use [Unknown]
